FAERS Safety Report 4854954-X (Version None)
Quarter: 2005Q4

REPORT INFORMATION
  Report Type: 
  Country: None (occurrence: None)
  Receive Date: 20051214
  Receipt Date: 20051206
  Transmission Date: 20060501
  Serious: Yes (Other)
  Sender: FDA-Public Use
  Company Number: 143283USA

PATIENT
  Age: 50 Year
  Sex: Female

DRUGS (5)
  1. GLATIRAMER ACETATE [Suspect]
     Indication: MULTIPLE SCLEROSIS
     Dosage: 20 MILLIGRAM, SUBCUTANEOUS
     Route: 058
     Dates: start: 19990406
  2. BACLOFEN [Concomitant]
  3. LEVOTHYROXINE SODIUM [Concomitant]
  4. TRAZODONE [Concomitant]
  5. ATENOLOL [Concomitant]

REACTIONS (3)
  - DRUG INEFFECTIVE [None]
  - INCORRECT ROUTE OF DRUG ADMINISTRATION [None]
  - INJECTION SITE NECROSIS [None]
